FAERS Safety Report 4712910-6 (Version None)
Quarter: 2005Q3

REPORT INFORMATION
  Report Type: 
  Country: None (occurrence: None)
  Receive Date: 20050713
  Receipt Date: 20050517
  Transmission Date: 20060218
  Serious: No
  Sender: FDA-Public Use
  Company Number: US-GLAXOSMITHKLINE-A0558988A

PATIENT
  Sex: Female

DRUGS (2)
  1. BEXXAR [Suspect]
     Indication: NON-HODGKIN'S LYMPHOMA
     Route: 042
     Dates: start: 20050101, end: 20050101
  2. NO CONCURRENT MEDICATION [Concomitant]

REACTIONS (5)
  - AUTOANTIBODY POSITIVE [None]
  - BACK PAIN [None]
  - BLOOD PRESSURE DECREASED [None]
  - NECK PAIN [None]
  - PAIN IN EXTREMITY [None]
